FAERS Safety Report 19167500 (Version 1)
Quarter: 2021Q2

REPORT INFORMATION
  Report Type: Report from Study
  Country: JP (occurrence: JP)
  Receive Date: 20210422
  Receipt Date: 20210422
  Transmission Date: 20210717
  Serious: Yes (Death, Life-Threatening, Other)
  Sender: FDA-Public Use
  Company Number: JP-RECORDATI RARE DISEASE INC.-2021001458

PATIENT
  Age: 2 Day
  Sex: Male

DRUGS (26)
  1. CALCICOL [Concomitant]
     Active Substance: CALCIUM GLUCONATE
     Indication: HYPOCALCAEMIA
     Dosage: UNK
     Route: 042
     Dates: start: 20190629, end: 20190702
  2. DOBUTAMINE [Concomitant]
     Active Substance: DOBUTAMINE HYDROCHLORIDE
     Indication: PATENT DUCTUS ARTERIOSUS
     Dosage: UNK
     Route: 042
     Dates: start: 20190629, end: 20190702
  3. DOBUTAMINE [Concomitant]
     Active Substance: DOBUTAMINE HYDROCHLORIDE
     Indication: HYPOTENSION
  4. HUMULIN R [Concomitant]
     Active Substance: INSULIN HUMAN
     Indication: HYPERKALAEMIA
     Dosage: UNK
     Route: 042
     Dates: start: 20190629, end: 20190701
  5. FUROSEMIDE. [Concomitant]
     Active Substance: FUROSEMIDE
     Indication: PATENT DUCTUS ARTERIOSUS
     Dosage: UNK
     Route: 042
     Dates: start: 20190629, end: 20190703
  6. FUROSEMIDE. [Concomitant]
     Active Substance: FUROSEMIDE
     Indication: RENAL IMPAIRMENT
  7. MIDAZOLAM. [Concomitant]
     Active Substance: MIDAZOLAM
     Indication: INTRAVENTRICULAR HAEMORRHAGE
     Dosage: UNK
     Route: 042
     Dates: start: 20190630, end: 20190702
  8. MEROPENEM. [Concomitant]
     Active Substance: MEROPENEM
     Indication: SEPSIS
     Dosage: UNK
     Route: 042
     Dates: start: 20190702, end: 20190703
  9. BOSMIN [EPINEPHRINE HYDROCHLORIDE] [Concomitant]
     Indication: SEPSIS
     Dosage: UNK
     Route: 042
     Dates: start: 20190702, end: 20190703
  10. NEOPROFEN [Suspect]
     Active Substance: IBUPROFEN LYSINE
     Indication: PATENT DUCTUS ARTERIOSUS
     Dosage: 8 MILLIGRAM
     Route: 042
     Dates: start: 20190630, end: 20190630
  11. NEOPROFEN [Suspect]
     Active Substance: IBUPROFEN LYSINE
     Dosage: 4 MILLIGRAM
     Route: 042
     Dates: start: 20190701, end: 20190701
  12. BIOLACTIS [Concomitant]
     Active Substance: LACTOBACILLUS CASEI
     Indication: PRODUCT USED FOR UNKNOWN INDICATION
     Dosage: UNK
     Route: 048
     Dates: start: 20190630, end: 20190702
  13. FENTANYL. [Concomitant]
     Active Substance: FENTANYL
     Indication: INTRAVENTRICULAR HAEMORRHAGE
     Dosage: UNK
     Route: 042
     Dates: start: 20190629, end: 20190702
  14. VANCOMYCIN [Concomitant]
     Active Substance: VANCOMYCIN
     Indication: SEPSIS
     Dosage: UNK
     Route: 042
     Dates: start: 20190702, end: 20190703
  15. VICCILLIN #1 [Concomitant]
     Indication: INFECTION PROPHYLAXIS
     Dosage: UNK
     Route: 042
     Dates: start: 20190629, end: 20190702
  16. FUNGUARD [Concomitant]
     Active Substance: MICAFUNGIN SODIUM
     Indication: INFECTION PROPHYLAXIS
     Dosage: UNK
     Route: 042
     Dates: start: 20190629, end: 20190703
  17. MEYLON [Concomitant]
     Active Substance: SODIUM BICARBONATE
     Indication: METABOLIC ACIDOSIS
     Dosage: UNK
     Route: 042
     Dates: start: 20190701, end: 20190702
  18. DOPAMINE HYDROCHLORIDE. [Concomitant]
     Active Substance: DOPAMINE HYDROCHLORIDE
     Indication: PATENT DUCTUS ARTERIOSUS
     Dosage: UNK
     Route: 042
     Dates: start: 20190629, end: 20190702
  19. SAXIZON [Concomitant]
     Active Substance: HYDROCORTISONE SODIUM SUCCINATE
     Indication: SEPSIS
     Dosage: UNK
     Route: 042
     Dates: start: 20190702, end: 20190702
  20. NEOPROFEN [Suspect]
     Active Substance: IBUPROFEN LYSINE
     Dosage: 4 MILLIGRAM
     Route: 042
     Dates: start: 20190702, end: 20190702
  21. DOPAMINE HYDROCHLORIDE. [Concomitant]
     Active Substance: DOPAMINE HYDROCHLORIDE
     Indication: HYPOTENSION
  22. MANNITOL. [Concomitant]
     Active Substance: MANNITOL
     Indication: INTRAVENTRICULAR HAEMORRHAGE
     Dosage: UNK
     Route: 042
     Dates: start: 20190702, end: 20190703
  23. AMIKACIN. [Concomitant]
     Active Substance: AMIKACIN
     Indication: INFECTION PROPHYLAXIS
     Dosage: UNK
     Route: 065
     Dates: start: 20190629, end: 20190702
  24. NEUTROGIN [Concomitant]
     Active Substance: LENOGRASTIM
     Indication: NEUTROPHIL COUNT DECREASED
     Dosage: UNK
     Route: 042
     Dates: start: 20190701, end: 20190702
  25. VENILON [Concomitant]
     Active Substance: HUMAN IMMUNOGLOBULIN G
     Indication: HYPOGAMMAGLOBULINAEMIA
     Dosage: UNK
     Route: 042
     Dates: start: 20190701, end: 20190701
  26. NOBELBAR [Concomitant]
     Active Substance: PHENOBARBITAL SODIUM
     Indication: INTRAVENTRICULAR HAEMORRHAGE
     Dosage: UNK
     Route: 042
     Dates: start: 20190702, end: 20190703

REACTIONS (6)
  - Sepsis [Fatal]
  - Hypernatraemia [Not Recovered/Not Resolved]
  - Neutrophil count decreased [Not Recovered/Not Resolved]
  - Anaemia [Not Recovered/Not Resolved]
  - Metabolic acidosis [Not Recovered/Not Resolved]
  - Platelet count decreased [Not Recovered/Not Resolved]

NARRATIVE: CASE EVENT DATE: 20190701
